FAERS Safety Report 11210794 (Version 1)
Quarter: 2015Q2

REPORT INFORMATION
  Report Type: Spontaneous
  Country: FR (occurrence: FR)
  Receive Date: 20150622
  Receipt Date: 20150622
  Transmission Date: 20150821
  Serious: Yes (Hospitalization)
  Sender: FDA-Public Use
  Company Number: FR-SA-2015SA088887

PATIENT
  Age: 92 Year
  Sex: Female

DRUGS (6)
  1. STILNOX [Suspect]
     Active Substance: ZOLPIDEM TARTRATE
     Dosage: FILM- COATED DIVISIBLE TABLET
     Route: 048
  2. LASILIX [Suspect]
     Active Substance: FUROSEMIDE
     Dosage: COMPRIM?  S?CABLE(SCORED TABLET)
     Route: 048
  3. TRIATEC [Suspect]
     Active Substance: RAMIPRIL
     Route: 048
  4. PREVISCAN [Suspect]
     Active Substance: FLUINDIONE
     Dosage: COMPRIM? S?CABLE(SCORED TABLET)
     Route: 048
  5. CARDENSIEL [Suspect]
     Active Substance: BISOPROLOL FUMARATE
     Route: 048
  6. EUPANTOL [Suspect]
     Active Substance: PANTOPRAZOLE SODIUM
     Route: 048

REACTIONS (1)
  - Hyponatraemia [Unknown]

NARRATIVE: CASE EVENT DATE: 20150603
